FAERS Safety Report 22240340 (Version 1)
Quarter: 2023Q2

REPORT INFORMATION
  Report Type: Spontaneous
  Country: US (occurrence: US)
  Receive Date: 20230421
  Receipt Date: 20230421
  Transmission Date: 20230722
  Serious: No
  Sender: FDA-Public Use
  Company Number: US-ALLERGAN-2209601US

PATIENT
  Sex: Female

DRUGS (1)
  1. RESTASIS [Suspect]
     Active Substance: CYCLOSPORINE
     Indication: Macular degeneration
     Dosage: UNK
     Route: 047
     Dates: start: 20210901

REACTIONS (2)
  - Off label use [Unknown]
  - Eye irritation [Unknown]
